FAERS Safety Report 9375576 (Version 2)
Quarter: 2013Q3

REPORT INFORMATION
  Report Type: Report from Study
  Country: DE (occurrence: DE)
  Receive Date: 20130628
  Receipt Date: 20130711
  Transmission Date: 20140515
  Serious: Yes (Hospitalization)
  Sender: FDA-Public Use
  Company Number: DE-TEVA-413553GER

PATIENT
  Age: 78 Year
  Sex: Male
  Weight: 79 kg

DRUGS (3)
  1. RATIOGRASTIM [Suspect]
     Indication: NEUTROPENIA
     Dosage: 48000000 IU (INTERNATIONAL UNIT) DAILY;
     Route: 058
     Dates: start: 20130614, end: 20130616
  2. LEVOFLOXACIN 1A PHARMA [Suspect]
     Indication: ANTIBIOTIC PROPHYLAXIS
     Dosage: 600 MILLIGRAM DAILY;
     Route: 048
     Dates: start: 20130612, end: 20130614
  3. AMPHO MORONAL [Concomitant]
     Indication: ANTIBIOTIC PROPHYLAXIS
     Dates: start: 201306, end: 201306

REACTIONS (3)
  - Circulatory collapse [Recovered/Resolved]
  - General physical health deterioration [Recovered/Resolved]
  - Cough [Recovered/Resolved]
